FAERS Safety Report 21127071 (Version 1)
Quarter: 2022Q3

REPORT INFORMATION
  Report Type: Spontaneous
  Country: US (occurrence: US)
  Receive Date: 20220725
  Receipt Date: 20220725
  Transmission Date: 20221027
  Serious: No
  Sender: FDA-Public Use
  Company Number: US-ABBVIE-21K-163-4031476-00

PATIENT
  Sex: Female

DRUGS (4)
  1. SYNTHROID [Suspect]
     Active Substance: LEVOTHYROXINE SODIUM
     Indication: Product used for unknown indication
     Route: 048
  2. ARMOUR THYROID [Concomitant]
     Active Substance: THYROID, PORCINE
     Indication: Product used for unknown indication
  3. IODINE [Concomitant]
     Active Substance: IODINE
     Indication: Product used for unknown indication
  4. IODINE [Concomitant]
     Active Substance: IODINE
     Indication: Product used for unknown indication

REACTIONS (2)
  - Osteoporosis [Unknown]
  - Hypothyroidism [Unknown]
